FAERS Safety Report 20576505 (Version 1)
Quarter: 2022Q1

REPORT INFORMATION
  Report Type: Spontaneous
  Country: US (occurrence: US)
  Receive Date: 20220310
  Receipt Date: 20220310
  Transmission Date: 20220423
  Serious: Yes (Hospitalization)
  Sender: FDA-Public Use
  Company Number: US-STRIDES ARCOLAB LIMITED-2022SP000028

PATIENT
  Age: 12 Year
  Sex: Male

DRUGS (14)
  1. PREDNISOLONE [Suspect]
     Active Substance: PREDNISOLONE
     Indication: Necrotising retinitis
     Dosage: UNK, (AT THE AGE OF 12 YEARS)
     Route: 065
  2. PREDNISOLONE [Suspect]
     Active Substance: PREDNISOLONE
     Dosage: UNK, (AT THE AGE OF 14 YEARS)
     Route: 065
  3. PREDNISOLONE [Suspect]
     Active Substance: PREDNISOLONE
     Dosage: 80 MILLIGRAM, UNK (AT THE AGE OF 14 YEARS)
     Route: 048
  4. PREDNISOLONE [Suspect]
     Active Substance: PREDNISOLONE
     Dosage: UNK (AT THE AGE OF 32 YEARS)
     Route: 065
  5. PREDNISOLONE [Suspect]
     Active Substance: PREDNISOLONE
     Dosage: UNK (SLOW TAPER)
     Route: 065
  6. VALACYCLOVIR [Suspect]
     Active Substance: VALACYCLOVIR HYDROCHLORIDE
     Indication: Necrotising retinitis
     Dosage: 500 MG TID (AT THE AGE OF 12 YEARS)
     Route: 065
  7. VALACYCLOVIR [Suspect]
     Active Substance: VALACYCLOVIR HYDROCHLORIDE
     Dosage: 500 MILLIGRAM, BID (VALTREX) (AT THE AGE OF 14 YEARS)
     Route: 065
  8. FOSCARNET [Suspect]
     Active Substance: FOSCARNET
     Indication: Necrotising retinitis
     Dosage: UNK, THREE INJECTIONS (AT THE AGE OF 12 YEARS)
     Route: 065
  9. FOSCARNET [Suspect]
     Active Substance: FOSCARNET
     Dosage: UNK, THREE INJECTIONS (AT THE AGE OF 14 YEARS)
     Route: 065
  10. ACYCLOVIR [Suspect]
     Active Substance: ACYCLOVIR
     Indication: Necrotising retinitis
     Dosage: UNK (AT THE AGE OF 12 YEARS)
     Route: 042
  11. ACYCLOVIR [Suspect]
     Active Substance: ACYCLOVIR
     Dosage: UNK,(AT THE AGE OF 14 YEARS)
     Route: 042
  12. CIDOFOVIR [Concomitant]
     Active Substance: CIDOFOVIR
     Indication: Necrotising retinitis
     Dosage: 300 MG EVERY 2 WEEKS (THREE DOSES) (AT THE AGE OF 12 YEARS)
     Route: 042
  13. CIDOFOVIR [Concomitant]
     Active Substance: CIDOFOVIR
     Dosage: UNK, EVERY 2 WEEKS FOR THREE DOSES  (AT THE AGE OF 14 YEARS)
     Route: 042
  14. CIDOFOVIR [Concomitant]
     Active Substance: CIDOFOVIR
     Dosage: UNK (AT THE AGE OF 32 YEARS)
     Route: 065

REACTIONS (1)
  - Drug ineffective [Unknown]
